FAERS Safety Report 9511528 (Version 1)
Quarter: 2013Q1

REPORT INFORMATION
  Report Type: Spontaneous
  Country: US (occurrence: None)
  Receive Date: 20130305
  Receipt Date: 20130305
  Transmission Date: 20140127
  Serious: Yes (Hospitalization, Other)
  Sender: FDA-Public Use
  Company Number: 163-21880-12052025

PATIENT
  Age: 65 Year
  Sex: Male

DRUGS (56)
  1. REVLIMID (LENALIDOMIDE) (CAPSULES) [Suspect]
     Indication: PLASMA CELL MYELOMA
     Dosage: 10 MG, 21 IN 28 D, PO
     Route: 048
     Dates: start: 20120302, end: 20120425
  2. POTASSIUM CITRATE (POTASSIUM CITRATE) [Concomitant]
  3. LOVENOX (HEPARIN-FRACTION, SODIUM SALT) [Concomitant]
  4. ZOFRAN (ONDANSETRON HYDROCHLORIDE) [Concomitant]
  5. DILAUDID (HYDROMORPHONE HYDROCHLORIDE) [Concomitant]
  6. TAMSULOSIN HCL (TAMSULOSIN HYDROCHLORIDE) [Concomitant]
  7. NEXIUM [Concomitant]
  8. COUMADIN (WARFARIN SODIUM) [Concomitant]
  9. VELCADE [Concomitant]
  10. ACETAMINOPHEN (PARACETAMOL) [Concomitant]
  11. DEXAMETHASONE (DEXAMETHASONE) [Concomitant]
  12. FILGRASTIM (FILGRASTIM) [Concomitant]
  13. HEPARIN (HEPARIN) [Concomitant]
  14. MAGIC MOUTH WASH (MACLEANS MOUTHGUARD) [Concomitant]
  15. NORMAL SALINE FLUSH (SODIUM CHLORIDE) [Concomitant]
  16. ONDANSETRON HCL (ONDANSETRON HYDROCHLORIDE) [Concomitant]
  17. ZOLEDRONIC ACID (ZOLEDRONIC ACID) [Concomitant]
  18. COLACE (DUCUSATE SODIUM) [Concomitant]
  19. CRESTOR (ROSUVASTATIN) [Concomitant]
  20. CYCLOBENZAPRINE HCL (CYCLOBENZAPRINE HYDROCHLORIDE) [Concomitant]
  21. FENTANYL (FENTANYL) [Concomitant]
  22. FISH OIL (FISH OIL) [Concomitant]
  23. FLUDROCORTISONE ACETATE (FLUDROCORTISONE ACETATE) [Concomitant]
  24. HYDROCODONE-ACETAMINOPHEN (REMEDEINE) [Concomitant]
  25. KLOR-CON (POTASSIUM CHLORIDE) [Concomitant]
  26. LORAZEPAM (LORAZEPAM) [Concomitant]
  27. LORTAB (VICODIN) [Concomitant]
  28. MAGNESIUM CITRATE (MAGNESIUM CITRATE) [Concomitant]
  29. MIDORINE HCL (MIDORINE HYDROCHLORIDE) [Concomitant]
  30. MIRALAX [Concomitant]
  31. PHILLIPS COLON HEALTH (LACTOBAC) [Concomitant]
  32. RAPAFLO (SILODOSIN) [Concomitant]
  33. SENNA [Concomitant]
  34. VITAMIN D HIGH POTENCY (ERGOCALCIFEROL) [Concomitant]
  35. RELISTOR (METHYLNALTREXONE BROMIDE) [Concomitant]
  36. SODIUM CHLORIDE (SODIUM CHLORIDE) [Concomitant]
  37. ZOMETA (ZOLEDRONIC ACID) [Concomitant]
  38. AMOXIL (AMOXICILLIN TRIHYDRATE) [Concomitant]
  39. ASPIRIN (ACETYLSALICYLIC ACID) [Concomitant]
  40. CO Q10 (UBIDECARENONE) [Concomitant]
  41. FLOMAX (TAMSULOSIN HYDROCHLORIDE) [Concomitant]
  42. NIACIN (NICOTINIC ACID) [Concomitant]
  43. OSTEO BI FLEX REGULAR STRENGTH (OSTEO BI-FLEX) [Concomitant]
  44. SIMVASTATIN (SIMVASTATIN) [Concomitant]
  45. SUPER B COMPLEX (BECOSYM FORTE) [Concomitant]
  46. PROCRIT [Concomitant]
  47. NEUPOGEN (FILGRASTIM) [Concomitant]
  48. ENOXAPARIN (ENOXAPARIN) [Concomitant]
  49. OMEGA 3 (FISH OIL) [Concomitant]
  50. POLYUNSATURATED FATTY ACIDS (FATTY ACIDS NOS) [Concomitant]
  51. CIPROFLOXACIN (CIPROFLOXACIN) [Concomitant]
  52. PERCOCET (OXYCOCET) [Concomitant]
  53. DIPHENHYDRAMINE (DIPHENHYDRAMINE) [Concomitant]
  54. PROTONIX [Concomitant]
  55. ROSUVASTATIN (ROSUVASTATIN) [Concomitant]
  56. EFFEXOR (VANLAFAXINE HYDROCHLORIDE) [Concomitant]

REACTIONS (3)
  - Deep vein thrombosis [None]
  - Urinary tract infection [None]
  - Orthostatic hypotension [None]
